FAERS Safety Report 24406309 (Version 1)
Quarter: 2024Q4

REPORT INFORMATION
  Report Type: Spontaneous
  Country: US (occurrence: US)
  Receive Date: 20241007
  Receipt Date: 20241007
  Transmission Date: 20250114
  Serious: No
  Sender: BAYER
  Company Number: US-BAYER-2024A141732

PATIENT
  Sex: Male

DRUGS (3)
  1. CLARITIN [Suspect]
     Active Substance: LORATADINE
     Indication: Rash
     Dosage: 10 MG, QD
  2. CLARITIN [Suspect]
     Active Substance: LORATADINE
     Indication: Urticaria chronic
  3. CLARITIN [Suspect]
     Active Substance: LORATADINE
     Indication: Mechanical urticaria

REACTIONS (1)
  - Drug ineffective for unapproved indication [None]
